FAERS Safety Report 25001599 (Version 3)
Quarter: 2025Q1

REPORT INFORMATION
  Report Type: Report from Study
  Country: US (occurrence: US)
  Receive Date: 20250223
  Receipt Date: 20250303
  Transmission Date: 20250409
  Serious: Yes (Hospitalization, Other)
  Sender: BIOGEN
  Company Number: US-BIOGEN-2025BI01301410

PATIENT
  Sex: Male

DRUGS (2)
  1. TYSABRI [Suspect]
     Active Substance: NATALIZUMAB
     Indication: Multiple sclerosis
     Route: 050
     Dates: start: 20111020, end: 202412
  2. PREDNISONE [Concomitant]
     Active Substance: PREDNISONE
     Indication: Product used for unknown indication
     Route: 050

REACTIONS (6)
  - Fall [Recovered/Resolved]
  - Bronchiolitis [Unknown]
  - Pyrexia [Unknown]
  - Rhinovirus infection [Unknown]
  - Confusional state [Unknown]
  - Insomnia [Unknown]
